FAERS Safety Report 8999994 (Version 1)
Quarter: 2013Q1

REPORT INFORMATION
  Report Type: Spontaneous
  Country: CN (occurrence: CN)
  Receive Date: 20130102
  Receipt Date: 20130102
  Transmission Date: 20140127
  Serious: Yes (Other)
  Sender: FDA-Public Use
  Company Number: CN-PFIZER INC-2012332569

PATIENT
  Age: 65 Year
  Sex: Female

DRUGS (1)
  1. CORDARONE [Suspect]
     Indication: ARRHYTHMIA
     Dosage: 0.6 G, 2X/DAY
     Route: 048
     Dates: start: 20090506, end: 20090513

REACTIONS (1)
  - Hypocalcaemia [Recovered/Resolved]
